FAERS Safety Report 6770582-3 (Version None)
Quarter: 2010Q2

REPORT INFORMATION
  Report Type: 
  Country: None (occurrence: None)
  Receive Date: 20100615
  Receipt Date: 20100603
  Transmission Date: 20101027
  Serious: Yes (Other)
  Sender: FDA-Public Use
  Company Number: JP-SANOFI-AVENTIS-2010SA033263

PATIENT
  Age: 40 Year
  Sex: Male

DRUGS (2)
  1. MYSLEE [Suspect]
     Indication: DEPRESSION
     Route: 048
  2. ANTIDEPRESSANTS (NOS) [Concomitant]
     Indication: DEPRESSION
     Route: 065

REACTIONS (3)
  - AMNESIA [None]
  - ROAD TRAFFIC ACCIDENT [None]
  - SOMNAMBULISM [None]
